FAERS Safety Report 12578957 (Version 1)
Quarter: 2016Q3

REPORT INFORMATION
  Report Type: Spontaneous
  Country: US (occurrence: None)
  Receive Date: 20160720
  Receipt Date: 20160720
  Transmission Date: 20161109
  Serious: No
  Sender: FDA-Public Use
  Company Number: None

PATIENT
  Age: 64 Year
  Sex: Female
  Weight: 81.19 kg

DRUGS (1)
  1. TOPIRAMATE 50 MG TABS [Suspect]
     Active Substance: TOPIRAMATE
     Indication: BIPOLAR DISORDER
     Route: 048
     Dates: start: 20150821

REACTIONS (4)
  - Irritability [None]
  - Anxiety [None]
  - Condition aggravated [None]
  - Anger [None]
